FAERS Safety Report 9197798 (Version 1)
Quarter: 2013Q1

REPORT INFORMATION
  Report Type: Not Available
  Country: GB (occurrence: GB)
  Receive Date: 20130328
  Receipt Date: 20130328
  Transmission Date: 20140127
  Serious: Yes (Other)
  Sender: FDA-Public Use
  Company Number: GB-PURDUE-GBR-2013-0013527

PATIENT
  Sex: Female

DRUGS (2)
  1. BUTRANS TRANSDERMAL PATCH - 20 MCG/HR [Suspect]
     Indication: PAIN
     Dosage: UNK
     Route: 062
  2. PROTELOS [Suspect]
     Indication: OSTEOPOROSIS
     Dosage: 2 G, DAILY
     Route: 048
     Dates: start: 2009

REACTIONS (4)
  - Spinal fracture [Unknown]
  - Spinal deformity [Not Recovered/Not Resolved]
  - Nausea [Unknown]
  - Vomiting [Unknown]
